FAERS Safety Report 5504793-1 (Version None)
Quarter: 2007Q4

REPORT INFORMATION
  Report Type: 
  Country: None (occurrence: None)
  Receive Date: 20071031
  Receipt Date: 20071031
  Transmission Date: 20080405
  Serious: Yes (Other)
  Sender: FDA-Public Use
  Company Number: None

PATIENT

DRUGS (1)
  1. NIASPAN [Suspect]
     Indication: HYPERLIPIDAEMIA
     Dosage: 1000 MG ONE TAB PO
     Route: 048
     Dates: start: 20070701

REACTIONS (2)
  - LIVER FUNCTION TEST ABNORMAL [None]
  - VISION BLURRED [None]
